FAERS Safety Report 18944267 (Version 1)
Quarter: 2021Q1

REPORT INFORMATION
  Report Type: Spontaneous
  Country: US (occurrence: US)
  Receive Date: 20210226
  Receipt Date: 20210226
  Transmission Date: 20210420
  Serious: No
  Sender: FDA-Public Use
  Company Number: US-GLAXOSMITHKLINE-US2021049956

PATIENT
  Age: 48 Year
  Sex: Female

DRUGS (2)
  1. PFIZER?BIONTECH COVID?19 VACCINE [Suspect]
     Active Substance: TOZINAMERAN
     Indication: PRODUCT USED FOR UNKNOWN INDICATION
     Dosage: UNK
     Dates: start: 20210216
  2. BENLYSTA [Suspect]
     Active Substance: BELIMUMAB
     Indication: SYSTEMIC LUPUS ERYTHEMATOSUS
     Dosage: 1200 MG, EVERY 4 WEEKS
     Route: 042
     Dates: start: 2019

REACTIONS (18)
  - Oropharyngeal pain [Unknown]
  - Pain [Unknown]
  - Somnolence [Unknown]
  - Arthralgia [Unknown]
  - Butterfly rash [Unknown]
  - Drug ineffective [Unknown]
  - Myalgia [Unknown]
  - Sensitive skin [Unknown]
  - Somatic symptom disorder [Unknown]
  - Headache [Unknown]
  - Chills [Not Recovered/Not Resolved]
  - Rash macular [Unknown]
  - Weight decreased [Unknown]
  - Aphonia [Unknown]
  - Fatigue [Unknown]
  - Hypersensitivity [Unknown]
  - Feeling hot [Not Recovered/Not Resolved]
  - Vision blurred [Unknown]

NARRATIVE: CASE EVENT DATE: 20210216
